FAERS Safety Report 7785056-0 (Version None)
Quarter: 2011Q3

REPORT INFORMATION
  Report Type: 
  Country: None (occurrence: None)
  Receive Date: 20110929
  Receipt Date: 20110920
  Transmission Date: 20111222
  Serious: Yes (Other)
  Sender: FDA-Public Use
  Company Number: US-BIOGENIDEC-2011BI016525

PATIENT
  Age: 37 Year
  Sex: Male

DRUGS (2)
  1. BETASERON [Concomitant]
     Indication: MULTIPLE SCLEROSIS
  2. AVONEX [Suspect]
     Indication: MULTIPLE SCLEROSIS
     Route: 030
     Dates: start: 20110429, end: 20110504

REACTIONS (10)
  - HYPERSENSITIVITY [None]
  - FEELING ABNORMAL [None]
  - FLUSHING [None]
  - INFLUENZA LIKE ILLNESS [None]
  - CENTRAL NERVOUS SYSTEM LESION [None]
  - CHILLS [None]
  - HEADACHE [None]
  - PYREXIA [None]
  - DISORIENTATION [None]
  - FATIGUE [None]
